FAERS Safety Report 18592290 (Version 8)
Quarter: 2022Q1

REPORT INFORMATION
  Report Type: Report from Study
  Country: US (occurrence: US)
  Receive Date: 20201209
  Receipt Date: 20220228
  Transmission Date: 20220423
  Serious: No
  Sender: FDA-Public Use
  Company Number: NVSC2020US326817

PATIENT
  Age: 41 Year
  Sex: Female

DRUGS (3)
  1. KESIMPTA [Suspect]
     Active Substance: OFATUMUMAB
     Indication: Multiple sclerosis
     Dosage: 20 MG (BENEATH THE SKIN)
     Route: 058
     Dates: start: 20201128
  2. KESIMPTA [Suspect]
     Active Substance: OFATUMUMAB
     Dosage: 20 MG
     Route: 058
  3. DECADRON [Concomitant]
     Active Substance: DEXAMETHASONE
     Indication: Product used for unknown indication
     Dosage: UNK
     Route: 065

REACTIONS (14)
  - Insomnia [Recovering/Resolving]
  - Blood thyroid stimulating hormone decreased [Recovered/Resolved]
  - Confusional state [Recovering/Resolving]
  - Ill-defined disorder [Recovering/Resolving]
  - Migraine [Recovering/Resolving]
  - Affect lability [Unknown]
  - Hypoaesthesia oral [Not Recovered/Not Resolved]
  - Dizziness [Unknown]
  - Nausea [Unknown]
  - Hypoaesthesia [Not Recovered/Not Resolved]
  - Nasal oedema [Unknown]
  - Fatigue [Recovering/Resolving]
  - Nasopharyngitis [Unknown]
  - Sinusitis [Unknown]

NARRATIVE: CASE EVENT DATE: 20201128
